FAERS Safety Report 25263707 (Version 1)
Quarter: 2025Q2

REPORT INFORMATION
  Report Type: Spontaneous
  Country: FR (occurrence: FR)
  Receive Date: 20250502
  Receipt Date: 20250502
  Transmission Date: 20250716
  Serious: Yes (Hospitalization, Other)
  Sender: CHEPLAPHARM
  Company Number: None

PATIENT
  Age: 84 Year
  Sex: Female
  Weight: 64.199 kg

DRUGS (11)
  1. PREDNISONE [Suspect]
     Active Substance: PREDNISONE
     Indication: Rheumatoid arthritis
     Dosage: DAILY DOSE: 6 MILLIGRAM
     Route: 048
     Dates: start: 2020
  2. HYDROXYUREA [Suspect]
     Active Substance: HYDROXYUREA
     Indication: Essential thrombocythaemia
     Dosage: DAILY DOSE: 1000 MILLIGRAM
     Route: 048
     Dates: start: 2020
  3. METHOTREXATE [Suspect]
     Active Substance: METHOTREXATE
     Indication: Rheumatoid arthritis
     Dates: start: 2020, end: 20240819
  4. KARDEGIC [Concomitant]
     Active Substance: ASPIRIN DL-LYSINE
     Indication: Cardiovascular event prophylaxis
     Dosage: POWDER FOR ORAL SOLUTION IN SINGLE-DOSE SACHETS?DAILY DOSE: 75 MILLIGRAM
     Route: 048
  5. FOLIC ACID [Concomitant]
     Active Substance: FOLIC ACID
     Indication: Drug toxicity prophylaxis
     Route: 048
  6. GAVISCON [Concomitant]
     Active Substance: ALUMINUM HYDROXIDE\MAGNESIUM CARBONATE
     Indication: Gastrooesophageal reflux disease
     Dosage: ORAL SUSPENSION IN SACHET?DAILY DOSE: 4 DOSAGE FORM
     Route: 048
  7. LEVOTHYROXINE [Concomitant]
     Active Substance: LEVOTHYROXINE
     Indication: Thyroidectomy
     Dosage: SCORED TABLET?DAILY DOSE: 125 MICROGRAM
     Route: 048
  8. Nutrivisc [Concomitant]
     Indication: Dry eye
     Dosage: NUTRIVISC 5 PERCENT (20 MG/0.4 ML), EYE DROPS, SOLUTION, SINGLE-DOSE CONTAINER
     Route: 047
  9. ESOMEPRAZOLE [Concomitant]
     Active Substance: ESOMEPRAZOLE
     Indication: Gastrooesophageal reflux disease
     Dosage: DAILY DOSE: 40 MILLIGRAM
     Route: 048
  10. ACETAMINOPHEN [Concomitant]
     Active Substance: ACETAMINOPHEN
     Indication: Pain
     Dosage: DAILY DOSE: 3 GRAM
     Route: 048
  11. FLUTICASONE FUROATE\VILANTEROL TRIFENATATE [Concomitant]
     Active Substance: FLUTICASONE FUROATE\VILANTEROL TRIFENATATE
     Indication: Product used for unknown indication
     Dosage: DAILY DOSE: 1 DOSAGE FORM
     Route: 055

REACTIONS (6)
  - Pneumonia cryptococcal [Recovered/Resolved]
  - Squamous cell carcinoma of skin [Recovering/Resolving]
  - Alpha haemolytic streptococcal infection [Unknown]
  - Pneumonia streptococcal [Unknown]
  - Weight decreased [Unknown]
  - Candida infection [Unknown]

NARRATIVE: CASE EVENT DATE: 20240101
